FAERS Safety Report 14483853 (Version 1)
Quarter: 2018Q1

REPORT INFORMATION
  Report Type: Spontaneous
  Country: JP (occurrence: JP)
  Receive Date: 20180205
  Receipt Date: 20180205
  Transmission Date: 20180509
  Serious: Yes (Hospitalization)
  Sender: FDA-Public Use
  Company Number: JP-ORION CORPORATION ORION PHARMA-ENT 2018-0018

PATIENT
  Sex: Male
  Weight: 55 kg

DRUGS (9)
  1. COMTAN [Suspect]
     Active Substance: ENTACAPONE
     Route: 048
  2. LEVODOPA [Concomitant]
     Active Substance: LEVODOPA
     Route: 065
  3. COMTAN [Suspect]
     Active Substance: ENTACAPONE
     Route: 048
  4. AMANTADINE. [Suspect]
     Active Substance: AMANTADINE HYDROCHLORIDE
     Route: 048
  5. COMTAN [Suspect]
     Active Substance: ENTACAPONE
     Indication: PARKINSON^S DISEASE
     Route: 048
  6. CABERGOLINE. [Concomitant]
     Active Substance: CABERGOLINE
     Route: 065
  7. AMANTADINE. [Suspect]
     Active Substance: AMANTADINE HYDROCHLORIDE
     Indication: PARKINSON^S DISEASE
     Route: 048
  8. ROTIGOTINE [Concomitant]
     Active Substance: ROTIGOTINE
     Route: 065
  9. TRIHEXYPHENIDYL HYDROCHLORIDE. [Concomitant]
     Active Substance: TRIHEXYPHENIDYL HYDROCHLORIDE
     Route: 065

REACTIONS (14)
  - Neuroleptic malignant syndrome [Unknown]
  - Depression [Unknown]
  - Akinesia [Unknown]
  - Constipation [Unknown]
  - Dyskinesia [Unknown]
  - Delusion [Recovered/Resolved]
  - On and off phenomenon [Unknown]
  - Diarrhoea [Unknown]
  - Dyslalia [Unknown]
  - Therapeutic response shortened [Unknown]
  - Somnolence [Recovered/Resolved]
  - Hallucination [Recovered/Resolved]
  - Anxiety [Unknown]
  - Hallucination, visual [Unknown]
